FAERS Safety Report 10601542 (Version 2)
Quarter: 2015Q2

REPORT INFORMATION
  Report Type: Report from Study
  Country: TR (occurrence: TR)
  Receive Date: 20141124
  Receipt Date: 20150527
  Transmission Date: 20150821
  Serious: Yes (Hospitalization, Congenital Anomaly)
  Sender: FDA-Public Use
  Company Number: TR-NOVOPROD-429275

PATIENT
  Sex: Female
  Weight: 1.5 kg

DRUGS (6)
  1. ELEVIT                             /01730301/ [Concomitant]
     Indication: SUPPLEMENTATION THERAPY
     Dosage: UNK
     Route: 064
     Dates: start: 20140319, end: 201405
  2. HUMULIN N [Concomitant]
     Active Substance: INSULIN HUMAN
     Dosage: 15 U, QD
     Route: 064
     Dates: start: 20140607, end: 20140730
  3. MAGNORM [Concomitant]
     Indication: SUPPLEMENTATION THERAPY
     Dosage: UNK
     Route: 064
     Dates: start: 20140319, end: 201405
  4. NOVOMIX 30 FLEXPEN [Suspect]
     Active Substance: INSULIN ASPART
     Indication: TYPE 2 DIABETES MELLITUS
     Dosage: 30 U, QD
     Route: 064
     Dates: start: 20140319, end: 20140607
  5. HUMULIN R [Concomitant]
     Active Substance: INSULIN HUMAN
     Dosage: UNK
     Route: 064
     Dates: start: 20140607, end: 20140730
  6. PULSE OMEGA 3 [Concomitant]
     Indication: SUPPLEMENTATION THERAPY
     Dosage: UNK
     Route: 064
     Dates: start: 20140319, end: 201405

REACTIONS (3)
  - Cardiac septal defect [Not Recovered/Not Resolved]
  - Premature baby [Unknown]
  - Foetal exposure during pregnancy [Recovered/Resolved]

NARRATIVE: CASE EVENT DATE: 20140319
